FAERS Safety Report 5214218-1 (Version None)
Quarter: 2007Q1

REPORT INFORMATION
  Report Type: 
  Country: None (occurrence: None)
  Receive Date: 20070122
  Receipt Date: 20070115
  Transmission Date: 20070707
  Serious: Yes (Other)
  Sender: FDA-Public Use
  Company Number: DE-JNJFOC-20070103070

PATIENT
  Sex: Female
  Weight: 70 kg

DRUGS (6)
  1. RISPERDAL CONSTA [Suspect]
     Indication: DELUSIONAL DISORDER, PERSECUTORY TYPE
     Route: 030
     Dates: start: 20051101, end: 20070112
  2. RISPERDAL [Concomitant]
     Indication: DELUSIONAL DISORDER, PERSECUTORY TYPE
     Route: 048
  3. AKINETON [Concomitant]
     Indication: DRUG USE FOR UNKNOWN INDICATION
     Route: 048
  4. MIRTAZAPINE [Concomitant]
     Indication: SLEEP DISORDER
     Route: 048
  5. MIRTAZAPINE [Concomitant]
     Indication: DEPRESSION
     Dosage: AT THE BEGINNING
     Route: 048
  6. BISOPROLOL FUMARATE [Concomitant]
     Indication: HYPERTENSION
     Dosage: AT THE BEGINNING
     Route: 048

REACTIONS (1)
  - BLEPHAROSPASM [None]
